FAERS Safety Report 16740486 (Version 1)
Quarter: 2019Q3

REPORT INFORMATION
  Report Type: Spontaneous
  Country: US (occurrence: US)
  Receive Date: 20190826
  Receipt Date: 20190826
  Transmission Date: 20191005
  Serious: No
  Sender: FDA-Public Use
  Company Number: US-PFIZER INC-2016528654

PATIENT
  Age: 82 Year
  Sex: Female

DRUGS (18)
  1. POLYETHYLENE GLYCOL 3350. [Concomitant]
     Active Substance: POLYETHYLENE GLYCOL 3350
     Indication: CONSTIPATION
     Dosage: UNK, AS NEEDED (TAKE 1 SCOOP DAILY PRN (AS NEEDED) )
     Route: 048
     Dates: start: 20090306
  2. LEVOTHYROXINE SODIUM. [Concomitant]
     Active Substance: LEVOTHYROXINE SODIUM
     Dosage: 137 UG, DAILY (TAKE 1 TABLET BY MOUTH EVERY DAY)
     Route: 048
     Dates: start: 20090224
  3. HYDROCHLOROTHIAZIDE AND LISINOPRIL [Concomitant]
     Active Substance: HYDROCHLOROTHIAZIDE\LISINOPRIL
     Dosage: UNK, DAILY (20-12.5 MG ORAL TABLET 90, TAKE 1 TABLET BY MOUTH EVERY DAY)
     Route: 048
     Dates: start: 20100204
  4. DESIPRAMINE HCL [Concomitant]
     Active Substance: DESIPRAMINE HYDROCHLORIDE
     Dosage: 10 MG, 1X/DAY (TAKE 1 TABLET EVERY NIGHT)
     Route: 048
     Dates: start: 20161107
  5. LORAZEPAM. [Concomitant]
     Active Substance: LORAZEPAM
     Dosage: 1 MG, AS NEEDED (TAKE 1 TABLET BY MOUTH THREE TIMES A DAY AS NEEDED)
     Route: 048
     Dates: start: 20051031
  6. POTASSIUM GLUCONATE [Concomitant]
     Active Substance: POTASSIUM GLUCONATE
     Dosage: 595 MG, DAILY
     Route: 048
  7. ACYCLOVIR [ACICLOVIR] [Concomitant]
     Active Substance: ACYCLOVIR
     Dosage: 800 MG, UNK (TAKE 1 TABLET 5 TIMES DAILY FOR 7 DAYS PM)
     Route: 048
     Dates: start: 20130912
  8. REPLENS [Concomitant]
     Active Substance: CARBOMER 934\GLYCERIN\METHYLPARABEN\PROPYLPARABEN\SODIUM HYDROXIDE
     Dosage: UNK, 2X/WEEK (APPLY TO THE AFFECTED AREA TWICE WEEKLY)
     Route: 067
     Dates: start: 20151005
  9. RANITIDINE HCL [Concomitant]
     Active Substance: RANITIDINE HYDROCHLORIDE
     Dosage: 300 MG, AS NEEDED (TAKE 1 CAPSULE DAILY PRN (AS NEEDED))
     Route: 048
  10. VANIQA [EFLORNITHINE] [Concomitant]
     Dosage: UNK, 2X/DAY (APPLY AND GENTLY MASSAGE INTO AFFECTED AREA(S) TWICE DAILY)
     Dates: start: 20120914
  11. AROMASIN [Suspect]
     Active Substance: EXEMESTANE
     Indication: BREAST CANCER FEMALE
     Dosage: 25 MG, UNK (USE AS DIRECTED)
     Route: 048
     Dates: start: 20161018
  12. XARELTO [Concomitant]
     Active Substance: RIVAROXABAN
     Dosage: 20 MG, 1X/DAY
     Route: 048
     Dates: start: 20140915
  13. OMEPRAZOLE. [Concomitant]
     Active Substance: OMEPRAZOLE
     Dosage: 40 MG, DAILY (TAKE 1 CAPSULE BY MOUTH EVERY DAY)
     Route: 048
     Dates: start: 20160609
  14. PROBIATA [Concomitant]
     Dosage: UNK
     Route: 048
  15. ATENOLOL. [Concomitant]
     Active Substance: ATENOLOL
     Dosage: 50 MG, DAILY (TAKE 1 TABLET BY MOUTH EVERY DAY)
     Route: 048
     Dates: start: 20100204
  16. CALCIUM + D DUETTO [Concomitant]
     Active Substance: CALCIUM\CHOLECALCIFEROL
     Dosage: UNK, 1X/DAY (600-200 MG ORAL TABLET, TAKE 1 TABLET EVERY NIGHT)
     Route: 048
     Dates: start: 20060530
  17. DICYCLOMINE HCL [Concomitant]
     Active Substance: DICYCLOMINE HYDROCHLORIDE
     Dosage: 20 MG, AS NEEDED (TAKE 1 TABLET EVERY 6 HOURS AS NEEDED)
     Route: 048
     Dates: start: 20161018
  18. DILTIAZEM HCL [Concomitant]
     Active Substance: DILTIAZEM HYDROCHLORIDE
     Dosage: 240 MG, UNK (240 MG ORAL CAPSULE EXTENDED, RELEASE 24 HOUR)
     Route: 048

REACTIONS (1)
  - Nasopharyngitis [Unknown]
